FAERS Safety Report 19082400 (Version 2)
Quarter: 2021Q2

REPORT INFORMATION
  Report Type: Report from Study
  Country: US (occurrence: US)
  Receive Date: 20210401
  Receipt Date: 20210628
  Transmission Date: 20210717
  Serious: Yes (Hospitalization)
  Sender: FDA-Public Use
  Company Number: US-TAKEDA-2021TUS009128

PATIENT
  Sex: Female

DRUGS (8)
  1. TEDUGLUTIDE [Suspect]
     Active Substance: TEDUGLUTIDE
     Dosage: UNK, QD
     Route: 065
  2. TEDUGLUTIDE [Suspect]
     Active Substance: TEDUGLUTIDE
     Indication: SHORT-BOWEL SYNDROME
     Dosage: 3 MILLIGRAM, QD
     Route: 058
     Dates: start: 20210205
  3. TEDUGLUTIDE [Suspect]
     Active Substance: TEDUGLUTIDE
     Indication: SHORT-BOWEL SYNDROME
     Dosage: 3 MILLIGRAM, QD
     Route: 058
     Dates: start: 20210205
  4. TEDUGLUTIDE [Suspect]
     Active Substance: TEDUGLUTIDE
     Indication: SHORT-BOWEL SYNDROME
     Dosage: 3 MILLIGRAM, QD
     Route: 058
     Dates: start: 20210205
  5. TEDUGLUTIDE [Suspect]
     Active Substance: TEDUGLUTIDE
     Indication: SHORT-BOWEL SYNDROME
     Dosage: 3 MILLIGRAM, QD
     Route: 058
     Dates: start: 20210205
  6. TEDUGLUTIDE [Suspect]
     Active Substance: TEDUGLUTIDE
     Dosage: UNK, QD
     Route: 065
  7. TEDUGLUTIDE [Suspect]
     Active Substance: TEDUGLUTIDE
     Dosage: UNK, QD
     Route: 065
  8. TEDUGLUTIDE [Suspect]
     Active Substance: TEDUGLUTIDE
     Dosage: UNK, QD
     Route: 065

REACTIONS (7)
  - Cyanosis [Unknown]
  - Nausea [Unknown]
  - Injection related reaction [Unknown]
  - Injection site erythema [Unknown]
  - Abdominal pain [Unknown]
  - Blood urea nitrogen/creatinine ratio increased [Unknown]
  - Pruritus [Unknown]
